FAERS Safety Report 22598942 (Version 3)
Quarter: 2023Q4

REPORT INFORMATION
  Report Type: Spontaneous
  Country: US (occurrence: US)
  Receive Date: 20230614
  Receipt Date: 20231106
  Transmission Date: 20240109
  Serious: No
  Sender: FDA-Public Use
  Company Number: US-BRISTOL-MYERS SQUIBB COMPANY-2023-083552

PATIENT
  Age: 82 Year
  Sex: Female
  Weight: 60.33 kg

DRUGS (1)
  1. POMALYST [Suspect]
     Active Substance: POMALIDOMIDE
     Indication: Plasma cell myeloma
     Route: 048
     Dates: start: 20230201

REACTIONS (5)
  - Product dose omission issue [Unknown]
  - Diarrhoea [Not Recovered/Not Resolved]
  - Gait disturbance [Recovering/Resolving]
  - Legal problem [Recovering/Resolving]
  - Fall [Recovering/Resolving]

NARRATIVE: CASE EVENT DATE: 20230101
